FAERS Safety Report 9686236 (Version 5)
Quarter: 2015Q3

REPORT INFORMATION
  Report Type: Spontaneous
  Country: CA (occurrence: CA)
  Receive Date: 20131113
  Receipt Date: 20150819
  Transmission Date: 20151125
  Serious: Yes (Hospitalization, Other)
  Sender: FDA-Public Use
  Company Number: CA-PFIZER INC-2013319405

PATIENT
  Age: 67 Year
  Sex: Female

DRUGS (12)
  1. SYNTHROID [Concomitant]
     Active Substance: LEVOTHYROXINE SODIUM
     Dosage: 0.125 MG, DAILY
  2. CALCIUM [Concomitant]
     Active Substance: CALCIUM
  3. SOMAVERT [Suspect]
     Active Substance: PEGVISOMANT
     Dosage: 20 MG, DAILY
     Dates: start: 20140109
  4. ADALAT [Concomitant]
     Active Substance: NIFEDIPINE
     Dosage: 20 MG, DAILY
  5. VITAMIN D [Concomitant]
     Active Substance: CHOLECALCIFEROL
     Dosage: UNK, TWO TIMES PER MONTH
  6. CLARITIN [Concomitant]
     Active Substance: LORATADINE
     Indication: SEASONAL ALLERGY
  7. SOMAVERT [Suspect]
     Active Substance: PEGVISOMANT
     Dosage: 40 MG, DAILY
     Dates: end: 20140108
  8. CABERGOLINE. [Concomitant]
     Active Substance: CABERGOLINE
  9. DOSTINEX [Concomitant]
     Active Substance: CABERGOLINE
     Dosage: 0.5 MG, 3X/WEEK
  10. CLONAZEPAM. [Concomitant]
     Active Substance: CLONAZEPAM
     Dosage: 0.5 MG, 2X/DAY
  11. SOMAVERT [Suspect]
     Active Substance: PEGVISOMANT
     Indication: ACROMEGALY
     Dosage: 15 MG, DAILY
     Dates: start: 20131010
  12. PANTOLOC /01263204/ [Concomitant]
     Active Substance: PANTOPRAZOLE SODIUM
     Dosage: 40 MG, AS NEEDED

REACTIONS (6)
  - Carotid artery disease [Not Recovered/Not Resolved]
  - Injection site induration [Not Recovered/Not Resolved]
  - Insulin-like growth factor increased [Unknown]
  - Injection site inflammation [Unknown]
  - Muscle spasms [Not Recovered/Not Resolved]
  - Pituitary tumour benign [Not Recovered/Not Resolved]

NARRATIVE: CASE EVENT DATE: 20131010
